FAERS Safety Report 5145840-9 (Version None)
Quarter: 2006Q4

REPORT INFORMATION
  Report Type: 
  Country: None (occurrence: None)
  Receive Date: 20061108
  Receipt Date: 20061026
  Transmission Date: 20070319
  Serious: Yes (Hospitalization)
  Sender: FDA-Public Use
  Company Number: PHBS2006LB16791

PATIENT
  Age: 68 Year
  Sex: Female

DRUGS (8)
  1. VALSARTAN [Suspect]
     Dosage: 40 MG, QD
     Route: 048
  2. ACETAMINOPHEN [Suspect]
     Indication: HEADACHE
     Dosage: 500 MG, UNK
  3. GLYBURIDE [Concomitant]
     Dosage: 5 MG, TID
     Route: 048
  4. AMLODIPINE [Concomitant]
     Dosage: 5 MG, QD
     Route: 048
  5. FUROSEMIDE [Concomitant]
     Dosage: 40 MG, QD
     Route: 048
  6. AMIODARONE HCL [Concomitant]
     Dosage: 200 MG, BID
     Route: 048
  7. SIMVASTATIN [Concomitant]
     Dosage: 20 MG, QD
     Route: 048
  8. ALLOPURINOL [Suspect]
     Indication: HYPERURICAEMIA
     Dosage: 300 MG, UNK

REACTIONS (23)
  - ACUTE RESPIRATORY DISTRESS SYNDROME [None]
  - BIOPSY [None]
  - BLOOD GLUCOSE INCREASED [None]
  - BLOOD URIC ACID INCREASED [None]
  - COOMBS TEST POSITIVE [None]
  - DYSPNOEA [None]
  - EOSINOPHIL COUNT INCREASED [None]
  - ERYTHEMA [None]
  - HAEMOGLOBIN DECREASED [None]
  - HAEMOLYTIC ANAEMIA [None]
  - HEADACHE [None]
  - HIDRADENITIS [None]
  - INFLAMMATION [None]
  - LEUKOCYTOSIS [None]
  - LYMPHOCYTE COUNT INCREASED [None]
  - NEUTROPHIL COUNT INCREASED [None]
  - NORMOCHROMIC NORMOCYTIC ANAEMIA [None]
  - PRURITUS [None]
  - RASH [None]
  - RED BLOOD CELL SEDIMENTATION RATE INCREASED [None]
  - RETICULOCYTE COUNT INCREASED [None]
  - THROMBOCYTOPENIA [None]
  - WHITE BLOOD CELL COUNT INCREASED [None]
